FAERS Safety Report 17021285 (Version 1)
Quarter: 2019Q4

REPORT INFORMATION
  Report Type: Spontaneous
  Country: US (occurrence: US)
  Receive Date: 20191007
  Receipt Date: 20191007
  Transmission Date: 20200122
  Serious: Yes (Other)
  Sender: FDA-Public Use
  Company Number: None

PATIENT
  Age: 70 Year
  Sex: Female

DRUGS (1)
  1. XOLAIR [Suspect]
     Active Substance: OMALIZUMAB
     Route: 058
     Dates: start: 20190131

REACTIONS (7)
  - Skin tightness [None]
  - Pain in extremity [None]
  - Anaphylactic shock [None]
  - Anxiety [None]
  - Head discomfort [None]
  - Hypoaesthesia [None]
  - Hypertension [None]

NARRATIVE: CASE EVENT DATE: 20190903
